FAERS Safety Report 7307982-9 (Version None)
Quarter: 2011Q1

REPORT INFORMATION
  Report Type: 
  Country: None (occurrence: None)
  Receive Date: 20110223
  Receipt Date: 20110210
  Transmission Date: 20110831
  Serious: Yes (Life-Threatening, Hospitalization, Other)
  Sender: FDA-Public Use
  Company Number: JP-SANOFI-AVENTIS-2010SA072981

PATIENT
  Age: 47 Year
  Sex: Male

DRUGS (37)
  1. ELPLAT [Suspect]
     Route: 041
     Dates: start: 20090728, end: 20090728
  2. AVASTIN [Concomitant]
     Indication: RECTAL CANCER
     Route: 041
     Dates: start: 20090714, end: 20090714
  3. CALCIUM LEVOFOLINATE [Concomitant]
     Indication: RECTAL CANCER
     Route: 041
     Dates: start: 20090629, end: 20090714
  4. 5-FU [Concomitant]
     Indication: RECTAL CANCER
     Route: 040
     Dates: start: 20090629, end: 20090714
  5. POLARAMINE [Concomitant]
     Indication: PREMEDICATION
     Route: 041
     Dates: start: 20090714, end: 20101028
  6. PLETAL [Concomitant]
     Indication: SUBCLAVIAN VEIN THROMBOSIS
     Route: 048
     Dates: start: 20090825, end: 20100412
  7. ELPLAT [Suspect]
     Route: 041
     Dates: start: 20100209, end: 20100209
  8. XELODA [Concomitant]
     Route: 048
     Dates: start: 20100413
  9. CALCIUM LEVOFOLINATE [Concomitant]
     Route: 041
     Dates: start: 20090728, end: 20090908
  10. CELESTAMINE TAB [Concomitant]
     Indication: PYREXIA
     Route: 048
     Dates: start: 20090715, end: 20100325
  11. LOXONIN [Concomitant]
     Indication: PYREXIA
     Dosage: UNK-60 MG
     Route: 048
     Dates: start: 20090908, end: 20100325
  12. 5-FU [Concomitant]
     Route: 041
     Dates: start: 20090629, end: 20090714
  13. GRANISETRON HCL [Concomitant]
     Indication: PREMEDICATION
     Route: 041
     Dates: start: 20100119, end: 20101028
  14. ELPLAT [Suspect]
     Route: 041
     Dates: start: 20101005, end: 20101005
  15. 5-FU [Concomitant]
     Route: 040
     Dates: start: 20090728, end: 20090908
  16. KYTRIL [Concomitant]
     Indication: PREMEDICATION
     Route: 041
     Dates: start: 20090629, end: 20090908
  17. CELESTAMINE TAB [Concomitant]
     Indication: RASH
     Route: 048
     Dates: start: 20090715, end: 20100325
  18. NERISONA [Concomitant]
     Indication: RASH
     Route: 061
     Dates: start: 20090715
  19. BIFIDOBACTERIUM BIFIDUM/ENTEROCOCCUS FAECIUM [Concomitant]
     Route: 048
     Dates: start: 20100302
  20. ELPLAT [Suspect]
     Route: 041
     Dates: start: 20100119, end: 20100119
  21. AVASTIN [Concomitant]
     Route: 041
     Dates: start: 20100413, end: 20101028
  22. DEXAMETHASONE SODIUM PHOSPHATE [Concomitant]
     Indication: PREMEDICATION
     Dosage: 8-6.6 MG
     Route: 041
     Dates: start: 20090629, end: 20101028
  23. TAMSULOSIN HYDROCHLORIDE [Concomitant]
     Indication: DYSURIA
     Route: 048
     Dates: start: 20090908, end: 20090921
  24. PROTECADIN [Concomitant]
     Indication: ABDOMINAL PAIN UPPER
     Route: 048
     Dates: start: 20100119, end: 20101027
  25. MOBIC [Concomitant]
     Route: 048
     Dates: start: 20100511
  26. ELPLAT [Suspect]
     Indication: RECTAL CANCER
     Route: 041
     Dates: start: 20090629, end: 20090629
  27. ELPLAT [Suspect]
     Route: 041
     Dates: start: 20101028, end: 20101028
  28. XELODA [Concomitant]
     Indication: RECTAL CANCER
     Route: 048
     Dates: start: 20100119, end: 20100201
  29. 5-FU [Concomitant]
     Route: 041
     Dates: start: 20090728, end: 20090908
  30. CELESTAMINE TAB [Concomitant]
     Route: 048
     Dates: start: 20090715, end: 20100325
  31. INDISETRON [Concomitant]
     Indication: NAUSEA
     Route: 048
     Dates: start: 20090825
  32. PYRINAZIN [Concomitant]
     Indication: PYREXIA
     Route: 048
     Dates: start: 20100601, end: 20100601
  33. ELPLAT [Suspect]
     Route: 041
     Dates: start: 20100413, end: 20100413
  34. XELODA [Concomitant]
     Route: 048
     Dates: start: 20100209, end: 20100405
  35. ZOMETA [Concomitant]
     Indication: RECTAL CANCER
     Route: 041
     Dates: start: 20100914, end: 20101028
  36. CELESTAMINE TAB [Concomitant]
     Route: 048
     Dates: start: 20090715, end: 20100325
  37. WARFARIN SODIUM [Concomitant]
     Indication: SUBCLAVIAN VEIN THROMBOSIS
     Route: 048
     Dates: start: 20100413, end: 20100930

REACTIONS (7)
  - HAEMATURIA [None]
  - HAEMOLYTIC ANAEMIA [None]
  - RENAL FAILURE ACUTE [None]
  - SUBCLAVIAN VEIN THROMBOSIS [None]
  - DISSEMINATED INTRAVASCULAR COAGULATION [None]
  - THROMBOSIS [None]
  - PLATELET COUNT DECREASED [None]
